FAERS Safety Report 20835822 (Version 2)
Quarter: 2022Q2

REPORT INFORMATION
  Report Type: Spontaneous
  Country: US (occurrence: None)
  Receive Date: 20220516
  Receipt Date: 20220519
  Transmission Date: 20220721
  Serious: No
  Sender: FDA-Public Use
  Company Number: 2022A182799

PATIENT

DRUGS (1)
  1. PRILOSEC [Suspect]
     Active Substance: OMEPRAZOLE MAGNESIUM
     Dosage: BEEN ON THIS FOR 6 MONTHS
     Route: 048

REACTIONS (2)
  - Haematochezia [Unknown]
  - Incorrect product administration duration [Unknown]
